FAERS Safety Report 12834289 (Version 2)
Quarter: 2016Q4

REPORT INFORMATION
  Report Type: Spontaneous
  Country: US (occurrence: US)
  Receive Date: 20161010
  Receipt Date: 20161118
  Transmission Date: 20170207
  Serious: Yes (Hospitalization)
  Sender: FDA-Public Use
  Company Number: US-BELCHER PHARMACEUTICALS, LLC-2016VTS00154

PATIENT
  Age: 67 Year
  Sex: Female
  Weight: 61.68 kg

DRUGS (4)
  1. MULTIVITAMIN [Concomitant]
     Active Substance: VITAMINS
  2. CALCIUM [Concomitant]
     Active Substance: CALCIUM
  3. HYOSCYAMINE SULFATE SL [Suspect]
     Active Substance: HYOSCYAMINE SULFATE
     Indication: ABDOMINAL PAIN UPPER
     Dosage: 0.125 MG, EVERY 4-6 H AS NEEDED
     Route: 060
     Dates: start: 201605, end: 201607
  4. VITAMIN D [Concomitant]
     Active Substance: CHOLECALCIFEROL

REACTIONS (10)
  - Speech disorder [Recovered/Resolved]
  - Dysarthria [Recovered/Resolved]
  - Hallucination [Recovered/Resolved]
  - Balance disorder [Recovered/Resolved]
  - Blood triglycerides increased [Not Recovered/Not Resolved]
  - Disorientation [Recovered/Resolved]
  - Confusional state [Recovered/Resolved]
  - Diabetes mellitus [Not Recovered/Not Resolved]
  - Blood cholesterol increased [Not Recovered/Not Resolved]
  - Dry mouth [Recovered/Resolved]

NARRATIVE: CASE EVENT DATE: 201607
